FAERS Safety Report 19135750 (Version 1)
Quarter: 2021Q2

REPORT INFORMATION
  Report Type: Spontaneous
  Country: DE (occurrence: DE)
  Receive Date: 20210414
  Receipt Date: 20210414
  Transmission Date: 20210717
  Serious: Yes (Hospitalization)
  Sender: FDA-Public Use
  Company Number: DE-ALLERGAN-2115186US

PATIENT
  Sex: Female

DRUGS (22)
  1. QUETIAPINE. [Suspect]
     Active Substance: QUETIAPINE
     Dosage: 50 MG, QD
  2. LEVOTHYROXINE. [Concomitant]
     Active Substance: LEVOTHYROXINE
     Dosage: 50 ?G, QD
  3. DECODERM TRI [Concomitant]
     Active Substance: FLUPREDNIDENE ACETATE\MICONAZOLE NITRATE
     Dosage: 2 DF
     Route: 003
  4. KALINOR [Concomitant]
     Dosage: 1 DF, QD
  5. MOXONIDINE [Concomitant]
     Active Substance: MOXONIDINE
     Dosage: 0.3 MG, QD
  6. EBRANTIL [Concomitant]
     Active Substance: URAPIDIL
     Dosage: 60 MG, TID
  7. MEMANTINE HCL ? BP [Suspect]
     Active Substance: MEMANTINE
     Indication: PRODUCT USED FOR UNKNOWN INDICATION
     Dosage: 20 MG, QAM
  8. METAMIZOLE [Concomitant]
     Active Substance: METAMIZOLE
     Dosage: 500 MG, PRN
  9. RISPERIDONE. [Suspect]
     Active Substance: RISPERIDONE
     Indication: PRODUCT USED FOR UNKNOWN INDICATION
     Dosage: 0.5 MG, QHS
  10. MOVICOL [Concomitant]
     Active Substance: POLYETHYLENE GLYCOL 3350\POTASSIUM CHLORIDE\SODIUM BICARBONATE\SODIUM CHLORIDE
     Dosage: UNK, PRN
  11. RAMIPRIL. [Concomitant]
     Active Substance: RAMIPRIL
     Dosage: 5 MG, BID
  12. QUETIAPINE. [Suspect]
     Active Substance: QUETIAPINE
     Dosage: 25 MG, PRN
  13. MAGNESIUM [Concomitant]
     Active Substance: MAGNESIUM
     Dosage: 2 DF, QD
  14. ASPIRIN PROTECT [Concomitant]
     Active Substance: ASPIRIN
     Dosage: 100 MG, QD
  15. AMLODIPINE [Concomitant]
     Active Substance: AMLODIPINE BESYLATE
     Dosage: 5 MG, BID
  16. LECICARBON E CO2 LAXANS [Concomitant]
     Dosage: UNK, PRN
     Route: 054
  17. OMEPRAZOLE. [Concomitant]
     Active Substance: OMEPRAZOLE
     Dosage: 20 MG, QD
  18. QUETIAPINE. [Suspect]
     Active Substance: QUETIAPINE
     Indication: PRODUCT USED FOR UNKNOWN INDICATION
     Dosage: 25 MG, BID
  19. LACTULOSE. [Suspect]
     Active Substance: LACTULOSE
     Indication: PRODUCT USED FOR UNKNOWN INDICATION
     Dosage: 20 ML, PRN
  20. TAVOR [Concomitant]
     Dosage: 1 MG, PRN
  21. LACTULOSE. [Suspect]
     Active Substance: LACTULOSE
     Dosage: 10 ML, BID
  22. ATORVASTATIN [Concomitant]
     Active Substance: ATORVASTATIN
     Dosage: 20 MG, QD

REACTIONS (5)
  - Asthenia [Unknown]
  - Somnolence [Unknown]
  - Dehydration [Unknown]
  - Disturbance in attention [Unknown]
  - General physical health deterioration [Unknown]
